FAERS Safety Report 5557389-X (Version None)
Quarter: 2007Q4

REPORT INFORMATION
  Report Type: 
  Country: None (occurrence: None)
  Receive Date: 20071211
  Receipt Date: 20071126
  Transmission Date: 20080405
  Serious: Yes (Other)
  Sender: FDA-Public Use
  Company Number: 2007S1012502

PATIENT
  Age: 51 Year
  Sex: Female

DRUGS (2)
  1. ZOPICLONE (ZOPICLONE) [Suspect]
     Indication: DRUG USE FOR UNKNOWN INDICATION
  2. SEROXAT /00830801/ (PAROXETINE) [Suspect]
     Indication: DRUG USE FOR UNKNOWN INDICATION
     Dates: start: 19930101, end: 20000101

REACTIONS (4)
  - DRUG WITHDRAWAL SYNDROME [None]
  - MENTAL STATUS CHANGES [None]
  - OVERDOSE [None]
  - SUICIDAL BEHAVIOUR [None]
